FAERS Safety Report 9917450 (Version 2)
Quarter: 2014Q1

REPORT INFORMATION
  Report Type: Spontaneous
  Country: US (occurrence: US)
  Receive Date: 20140221
  Receipt Date: 20140304
  Transmission Date: 20141002
  Serious: No
  Sender: FDA-Public Use
  Company Number: US-PFIZER INC-2014047474

PATIENT
  Age: 48 Year
  Sex: Female
  Weight: 63.9 kg

DRUGS (6)
  1. NEURONTIN [Suspect]
     Indication: DIABETIC NEUROPATHY
     Dosage: 100 MG, 3X/DAY
     Dates: start: 2013, end: 2013
  2. NEURONTIN [Suspect]
     Indication: BURNING SENSATION
     Dosage: 300 MG, 3X/DAY
     Dates: start: 2013, end: 2013
  3. NEURONTIN [Suspect]
     Indication: PAIN IN EXTREMITY
     Dosage: 400 MG, 3X/DAY
     Dates: start: 2013, end: 201309
  4. NEURONTIN [Suspect]
     Indication: NEUROPATHY PERIPHERAL
  5. HUMULIN 70/30 [Concomitant]
     Indication: DIABETES MELLITUS
     Dosage: UNK, 3X/DAY
  6. AMARYL [Concomitant]
     Indication: DIABETES MELLITUS
     Dosage: 4 MG, 2X/DAY

REACTIONS (1)
  - Drug ineffective [Unknown]
